FAERS Safety Report 8819889 (Version 2)
Quarter: 2012Q4

REPORT INFORMATION
  Report Type: 
  Country: US (occurrence: US)
  Receive Date: 20121001
  Receipt Date: 20121023
  Transmission Date: 20130627
  Serious: Yes (Hospitalization)
  Sender: FDA-Public Use
  Company Number: US-B.I. PHARMACEUTICALS,INC./RIDGEFIELD-2012-BP-23334BP

PATIENT
  Age: 69 Year
  Sex: Female
  Weight: 134.8 kg

DRUGS (23)
  1. PRADAXA [Suspect]
     Indication: CEREBROVASCULAR ACCIDENT PROPHYLAXIS
     Dosage: 300 mg
     Route: 048
     Dates: start: 2008, end: 20120912
  2. PRADAXA [Suspect]
     Indication: ATRIAL FIBRILLATION
  3. DIGOXIN [Concomitant]
  4. ALBUTEROL [Concomitant]
  5. CYMBALTA [Concomitant]
  6. LORAZEPAM [Concomitant]
  7. LOVAZA [Concomitant]
  8. SYNTHROID [Concomitant]
  9. LANTUS [Concomitant]
  10. LISINOPRIL [Concomitant]
  11. OMEPRAZOLE [Concomitant]
  12. CELEBREX [Concomitant]
  13. POTASSIUM [Concomitant]
  14. GLIMEPIRIDE [Concomitant]
  15. ASA 81MG [Concomitant]
  16. VITAMIN D3 [Concomitant]
  17. INSULIN LISPRO [Concomitant]
  18. METOPROLOL [Concomitant]
  19. LASIX [Concomitant]
  20. KCL [Concomitant]
  21. METFORMIN [Concomitant]
  22. DILTIAZEM [Concomitant]
  23. LOPID [Concomitant]

REACTIONS (1)
  - Pulmonary embolism [Recovered/Resolved]
